FAERS Safety Report 14401115 (Version 2)
Quarter: 2018Q1

REPORT INFORMATION
  Report Type: Spontaneous
  Country: US (occurrence: US)
  Receive Date: 20180117
  Receipt Date: 20180320
  Transmission Date: 20180509
  Serious: No
  Sender: FDA-Public Use
  Company Number: US-PFIZER INC-2018013252

PATIENT
  Age: 15 Year
  Sex: Male
  Weight: 54.43 kg

DRUGS (11)
  1. QUILLIVANT XR [Suspect]
     Active Substance: METHYLPHENIDATE HYDROCHLORIDE
     Dosage: UNK (STARTED TO CUT BACK)
     Route: 048
     Dates: start: 201712
  2. QUILLIVANT XR [Suspect]
     Active Substance: METHYLPHENIDATE HYDROCHLORIDE
     Dosage: 6 ML, 2X/DAY
     Route: 048
     Dates: start: 20180102, end: 20180102
  3. QUILLIVANT XR [Suspect]
     Active Substance: METHYLPHENIDATE HYDROCHLORIDE
     Dosage: 2 ML, DAILY
  4. SEROQUEL [Concomitant]
     Active Substance: QUETIAPINE FUMARATE
     Indication: AFFECTIVE DISORDER
     Dosage: 100 MG, UNK
     Dates: start: 2015
  5. FISH OIL [Concomitant]
     Active Substance: FISH OIL
     Indication: CARDIAC DISORDER
     Dosage: 1000 MG, UNK
     Dates: start: 2016
  6. QUILLIVANT XR [Suspect]
     Active Substance: METHYLPHENIDATE HYDROCHLORIDE
     Indication: ATTENTION DEFICIT/HYPERACTIVITY DISORDER
     Dosage: 6 ML, 2X/DAY (6 ML IN THE MORNING AND 6 ML AT LUNCH)
     Route: 048
     Dates: start: 2014, end: 201712
  7. DEPAKOTE [Concomitant]
     Active Substance: DIVALPROEX SODIUM
     Indication: AFFECTIVE DISORDER
     Dosage: 125 MG, 2X/DAY
     Dates: start: 2010
  8. FLINTSTONES MULTIPLE VITAMINS [Concomitant]
     Indication: GENERAL PHYSICAL CONDITION ABNORMAL
     Dosage: 1 DF, 1X/DAY (ONE TABLET A DAY)
     Dates: start: 2005
  9. BENEFIBER [Concomitant]
     Active Substance: STARCH, WHEAT
     Indication: BLOOD CHOLESTEROL INCREASED
     Dosage: UNK, 1X/DAY (ONE TABLESPOON A DAY MIXED WITH ORANGE JUICE)
     Dates: start: 2017
  10. QUILLIVANT XR [Suspect]
     Active Substance: METHYLPHENIDATE HYDROCHLORIDE
     Dosage: 2 ML, 2X/DAY (2ML IN THE MORNING AND 2ML AT LUNCH)
     Route: 048
     Dates: start: 20180103
  11. EFFEXOR XR [Concomitant]
     Active Substance: VENLAFAXINE HYDROCHLORIDE
     Indication: ANXIETY
     Dosage: 37.5 MG, UNK
     Dates: start: 2014

REACTIONS (4)
  - Drug ineffective [Not Recovered/Not Resolved]
  - Intentional product use issue [Recovered/Resolved]
  - Drug dose omission [Unknown]
  - Crying [Recovered/Resolved]

NARRATIVE: CASE EVENT DATE: 201712
